FAERS Safety Report 10259820 (Version 4)
Quarter: 2015Q2

REPORT INFORMATION
  Report Type: Spontaneous
  Country: US (occurrence: US)
  Receive Date: 20140625
  Receipt Date: 20150428
  Transmission Date: 20150821
  Serious: Yes (Hospitalization, Other)
  Sender: FDA-Public Use
  Company Number: US-GLAXOSMITHKLINE-A1072785A

PATIENT
  Sex: Female

DRUGS (7)
  1. ADVAIR HFA [Suspect]
     Active Substance: FLUTICASONE PROPIONATE\SALMETEROL XINAFOATE
     Indication: MULTIPLE ALLERGIES
  2. VENTOLIN [Suspect]
     Active Substance: ALBUTEROL SULFATE
     Indication: ASTHMA
     Dosage: 90MCG, UNKNOWN DAILY DOSING
     Route: 055
     Dates: start: 20121227
  3. VENTOLIN [Suspect]
     Active Substance: ALBUTEROL SULFATE
     Indication: EMPHYSEMA
  4. SINGULAIR [Suspect]
     Active Substance: MONTELUKAST SODIUM
     Indication: MULTIPLE ALLERGIES
     Dosage: UNKNOWN
     Route: 065
     Dates: start: 1998, end: 2012
  5. ADVAIR HFA [Suspect]
     Active Substance: FLUTICASONE PROPIONATE\SALMETEROL XINAFOATE
     Indication: ASTHMA
     Dosage: 250/50 MGFU INFO - INTIALLY USED PRODUCT (2002) PRN
     Route: 055
     Dates: start: 20121227
  6. ADVAIR HFA [Suspect]
     Active Substance: FLUTICASONE PROPIONATE\SALMETEROL XINAFOATE
     Indication: EMPHYSEMA
  7. VENTOLIN [Suspect]
     Active Substance: ALBUTEROL SULFATE
     Indication: MULTIPLE ALLERGIES

REACTIONS (19)
  - Hiatus hernia [Unknown]
  - Hypersensitivity [Unknown]
  - Underdose [Recovered/Resolved]
  - Aggression [Unknown]
  - Contusion [Unknown]
  - Stress [Unknown]
  - Asthma [Unknown]
  - Allergy to chemicals [Not Recovered/Not Resolved]
  - Inhalation therapy [Unknown]
  - Intentional product use issue [Unknown]
  - Menstruation irregular [Unknown]
  - Local swelling [Unknown]
  - Weight decreased [Unknown]
  - Therapeutic response decreased [Recovered/Resolved]
  - Drug dependence [Unknown]
  - Loss of consciousness [Unknown]
  - Disability [Unknown]
  - Gastric ulcer [Unknown]
  - Poisoning [Unknown]

NARRATIVE: CASE EVENT DATE: 2010
